FAERS Safety Report 12345553 (Version 1)
Quarter: 2016Q2

REPORT INFORMATION
  Report Type: Other
  Country: SI (occurrence: SI)
  Receive Date: 20160509
  Receipt Date: 20160509
  Transmission Date: 20160815
  Serious: No
  Sender: FDA-Public Use
  Company Number: SI-LUPIN PHARMACEUTICALS INC.-2016-00817

PATIENT
  Sex: Female

DRUGS (1)
  1. DONEPEZIL. [Suspect]
     Active Substance: DONEPEZIL
     Indication: PRODUCT USED FOR UNKNOWN INDICATION
     Route: 065

REACTIONS (2)
  - Hypersexuality [Unknown]
  - Libido increased [Unknown]
